FAERS Safety Report 24253284 (Version 1)
Quarter: 2024Q3

REPORT INFORMATION
  Report Type: Spontaneous
  Country: US (occurrence: None)
  Receive Date: 20240826
  Receipt Date: 20240826
  Transmission Date: 20241017
  Serious: Yes (Life-Threatening)
  Sender: Public
  Company Number: None

PATIENT
  Age: 67 Year
  Sex: Female
  Weight: 31.27 kg

DRUGS (2)
  1. DESMOPRESSIN [Suspect]
     Active Substance: DESMOPRESSIN
  2. HYDROCORTISONE [Suspect]
     Active Substance: HYDROCORTISONE\HYDROCORTISONE ACETATE

REACTIONS (8)
  - Product dispensing error [None]
  - Therapy interrupted [None]
  - Fatigue [None]
  - Adrenocortical insufficiency acute [None]
  - Iatrogenic injury [None]
  - Labelled drug-drug interaction issue [None]
  - Product label issue [None]
  - Product communication issue [None]

NARRATIVE: CASE EVENT DATE: 20231114
